FAERS Safety Report 15075710 (Version 1)
Quarter: 2018Q2

REPORT INFORMATION
  Report Type: Spontaneous
  Country: US (occurrence: US)
  Receive Date: 20180627
  Receipt Date: 20180627
  Transmission Date: 20180711
  Serious: Yes (Other)
  Sender: FDA-Public Use
  Company Number: US-SA-2018SA169760

PATIENT
  Age: 55 Year
  Sex: Female
  Weight: 81.64 kg

DRUGS (3)
  1. NEOSAR [Concomitant]
     Active Substance: CYCLOPHOSPHAMIDE
  2. TAXOTERE [Suspect]
     Active Substance: DOCETAXEL
     Indication: BREAST CANCER FEMALE
     Dosage: 10 MG, Q3W
     Route: 042
     Dates: start: 20120608, end: 20120608
  3. TAXOTERE [Suspect]
     Active Substance: DOCETAXEL
     Dosage: 10 MG, Q3W
     Route: 042
     Dates: start: 20120809, end: 20120809

REACTIONS (2)
  - Psychological trauma [Unknown]
  - Alopecia [Recovering/Resolving]
